FAERS Safety Report 6467400-X (Version None)
Quarter: 2009Q4

REPORT INFORMATION
  Report Type: 
  Country: None (occurrence: None)
  Receive Date: 20091202
  Receipt Date: 20091123
  Transmission Date: 20100525
  Serious: Yes (Other)
  Sender: FDA-Public Use
  Company Number: A0832372A

PATIENT
  Sex: Male

DRUGS (3)
  1. LAMICTAL [Suspect]
     Dosage: 150MG UNKNOWN
     Route: 065
  2. LAMOTRIGINE [Suspect]
     Route: 065
  3. KEPPRA [Suspect]
     Dosage: 1000MG UNKNOWN
     Route: 065

REACTIONS (1)
  - CONVULSION [None]
